FAERS Safety Report 4370516-5 (Version None)
Quarter: 2004Q2

REPORT INFORMATION
  Report Type: 
  Country: None (occurrence: None)
  Receive Date: 20040601
  Receipt Date: 20031106
  Transmission Date: 20050107
  Serious: Yes (Hospitalization)
  Sender: FDA-Public Use
  Company Number: US052855

PATIENT
  Age: 75 Year
  Sex: Female

DRUGS (5)
  1. ENBREL [Suspect]
     Indication: RHEUMATOID ARTHRITIS
     Dosage: TWICE WEEKLY, SC
     Route: 058
     Dates: start: 20030101
  2. LEFLUNOMIDE [Concomitant]
  3. OMEPRAZOLE [Concomitant]
  4. LEVOTHYROXINE SODIUM [Concomitant]
  5. PREDNISONE [Concomitant]

REACTIONS (1)
  - URINARY TRACT INFECTION [None]
